FAERS Safety Report 9723291 (Version 3)
Quarter: 2014Q1

REPORT INFORMATION
  Report Type: Spontaneous
  Country: CA (occurrence: CA)
  Receive Date: 20131202
  Receipt Date: 20140207
  Transmission Date: 20141002
  Serious: Yes (Hospitalization, Other)
  Sender: FDA-Public Use
  Company Number: CA-AMGEN-CANSP2013084445

PATIENT
  Age: 36 Year
  Sex: Female

DRUGS (8)
  1. ENBREL [Suspect]
     Indication: SPONDYLOARTHROPATHY
     Dosage: 50 MG, QWK (2X 25 MG EVERY WEEKLY)
     Route: 058
     Dates: start: 200702, end: 201311
  2. ENBREL [Suspect]
     Indication: RHEUMATOID ARTHRITIS
  3. METHOTREXATE [Suspect]
     Indication: PRODUCT USED FOR UNKNOWN INDICATION
     Dosage: 20 UNK, UNK
     Route: 058
  4. VITAMIN D                          /00107901/ [Concomitant]
     Dosage: UNK
  5. LEUCOVORIN                         /00566701/ [Concomitant]
     Dosage: UNK
  6. NAPROSYN                           /00256201/ [Concomitant]
     Dosage: UNK
  7. SYNTHROID [Concomitant]
     Dosage: UNK
  8. ELAVIL                             /00002202/ [Concomitant]
     Dosage: UNK

REACTIONS (6)
  - Immunosuppression [Unknown]
  - Hepatitis [Not Recovered/Not Resolved]
  - Infectious mononucleosis [Recovering/Resolving]
  - Headache [Unknown]
  - Thrombocytopenia [Unknown]
  - Leukopenia [Unknown]
